FAERS Safety Report 4694121-6 (Version None)
Quarter: 2005Q2

REPORT INFORMATION
  Report Type: 
  Country: None (occurrence: None)
  Receive Date: 20050616
  Receipt Date: 20050616
  Transmission Date: 20051028
  Serious: Yes (Other)
  Sender: FDA-Public Use
  Company Number: None

PATIENT
  Sex: Male
  Weight: 66.7 kg

DRUGS (4)
  1. CYCLOPHOSPHAMIDE [Suspect]
     Indication: ACUTE LYMPHOCYTIC LEUKAEMIA
     Dosage: 650 MG/M2 IV OVER 30 MIN ON DAYS 1, 15 AND 29.
     Route: 042
     Dates: start: 20050325
  2. CYTARABINE [Suspect]
     Dosage: 75 MG/M2 IV OVER 30 MIN QD ON DAYS 1-4, 8-11, 15-18, AND 22-25.
     Route: 042
  3. MERCAPTOPURINE [Suspect]
     Dosage: 60 MG/M2 PO QD FOR 28 DAYS
     Route: 048
  4. METHOTREXATE [Suspect]
     Dosage: 12.5 MG IT ON DAYS 1, 8, 15 AND 22.
     Route: 037

REACTIONS (2)
  - DEHYDRATION [None]
  - MALNUTRITION [None]
